FAERS Safety Report 6947630-0 (Version None)
Quarter: 2010Q3

REPORT INFORMATION
  Report Type: 
  Country: None (occurrence: None)
  Receive Date: 20100828
  Receipt Date: 20090924
  Transmission Date: 20110219
  Serious: No
  Sender: FDA-Public Use
  Company Number: US-ABBOTT-09P-163-0599648-00

PATIENT
  Sex: Male
  Weight: 111.23 kg

DRUGS (2)
  1. NIASPAN [Suspect]
     Indication: PRODUCT USED FOR UNKNOWN INDICATION
     Dates: start: 20080101
  2. TRICOR [Concomitant]
     Indication: LIPIDS NORMAL
     Dates: start: 20070101

REACTIONS (2)
  - FLUSHING [None]
  - PRURITUS [None]
